FAERS Safety Report 15725121 (Version 2)
Quarter: 2019Q1

REPORT INFORMATION
  Report Type: Spontaneous
  Country: BR (occurrence: BR)
  Receive Date: 20181215
  Receipt Date: 20190130
  Transmission Date: 20190417
  Serious: Yes (Other)
  Sender: FDA-Public Use
  Company Number: BR-AMGEN-BRASP2018178255

PATIENT
  Age: 49 Year
  Sex: Female

DRUGS (2)
  1. ENBREL [Suspect]
     Active Substance: ETANERCEPT
     Dosage: 50 MG, 50MG TO EACH KNEE
     Route: 065
     Dates: start: 201503, end: 201506
  2. ENBREL [Suspect]
     Active Substance: ETANERCEPT
     Indication: PRODUCT USED FOR UNKNOWN INDICATION
     Dosage: 50MG TO EACH KNEE
     Route: 065
     Dates: start: 201503, end: 201507

REACTIONS (15)
  - Tooth loss [Unknown]
  - Pain in extremity [Unknown]
  - Inflammation [Not Recovered/Not Resolved]
  - Alopecia [Unknown]
  - Chondropathy [Unknown]
  - Arthropathy [Unknown]
  - Blood calcium decreased [Unknown]
  - Bone decalcification [Unknown]
  - Muscular weakness [Unknown]
  - Weight decreased [Unknown]
  - Tuberculosis [Unknown]
  - Disease recurrence [Unknown]
  - Formication [Unknown]
  - Product use issue [Unknown]
  - Body height decreased [Unknown]

NARRATIVE: CASE EVENT DATE: 2015
